FAERS Safety Report 6775279-1 (Version None)
Quarter: 2010Q2

REPORT INFORMATION
  Report Type: 
  Country: None (occurrence: None)
  Receive Date: 20100615
  Receipt Date: 20100615
  Transmission Date: 20101027
  Serious: Yes (Other)
  Sender: FDA-Public Use
  Company Number: None

PATIENT
  Age: 44 Year
  Sex: Male
  Weight: 103.8737 kg

DRUGS (4)
  1. VANCOMYCIN [Suspect]
     Indication: NASAL POLYPS
     Dosage: 1 VIAL IN NASAL NEBULIZER THREE TIMES DAILY INHAL
     Dates: start: 20100529, end: 20100606
  2. VANCOMYCIN [Suspect]
     Indication: SINUSITIS
     Dosage: 1 VIAL IN NASAL NEBULIZER THREE TIMES DAILY INHAL
     Dates: start: 20100529, end: 20100606
  3. TOBRAMYCIN [Suspect]
     Indication: NASAL POLYPS
     Dosage: 1 VIAL IN NASAL NEBULIZER THREE TIMES DAILY INHAL
     Dates: start: 20100529, end: 20100606
  4. TOBRAMYCIN [Suspect]
     Indication: SINUSITIS
     Dosage: 1 VIAL IN NASAL NEBULIZER THREE TIMES DAILY INHAL
     Dates: start: 20100529, end: 20100606

REACTIONS (5)
  - BRONCHIAL DISORDER [None]
  - CHEST DISCOMFORT [None]
  - COUGH [None]
  - DYSPNOEA [None]
  - LUNG DISORDER [None]
